FAERS Safety Report 9471126 (Version 3)
Quarter: 2013Q3

REPORT INFORMATION
  Report Type: Spontaneous
  Country: US (occurrence: US)
  Receive Date: 20130822
  Receipt Date: 20130916
  Transmission Date: 20140515
  Serious: No
  Sender: FDA-Public Use
  Company Number: US-TEVA-427001USA

PATIENT
  Age: 30 Year
  Sex: Female
  Weight: 58.11 kg

DRUGS (3)
  1. PARAGARD 380A [Suspect]
     Indication: CONTRACEPTION
     Route: 015
     Dates: start: 20130814, end: 20130815
  2. ACYCLOVIR [Concomitant]
     Indication: ORAL HERPES
  3. MICROGESTIN [Concomitant]
     Indication: CONTRACEPTION

REACTIONS (5)
  - Abdominal pain [Recovered/Resolved]
  - Pain [Recovered/Resolved]
  - Anxiety [Recovered/Resolved]
  - Complication of device insertion [Unknown]
  - Device expulsion [Unknown]
